FAERS Safety Report 14175401 (Version 2)
Quarter: 2017Q4

REPORT INFORMATION
  Report Type: Report from Study
  Country: AU (occurrence: AU)
  Receive Date: 20171109
  Receipt Date: 20171120
  Transmission Date: 20180321
  Serious: Yes (Hospitalization)
  Sender: FDA-Public Use
  Company Number: AU-PFIZER INC-2017483404

PATIENT

DRUGS (6)
  1. FUROSEMIDE. [Interacting]
     Active Substance: FUROSEMIDE
     Dosage: UNK
  2. OXAZEPAM. [Suspect]
     Active Substance: OXAZEPAM
     Dosage: UNK
  3. NITROGLYCERIN. [Interacting]
     Active Substance: NITROGLYCERIN
     Dosage: UNK
  4. METOPROLOL. [Interacting]
     Active Substance: METOPROLOL
     Dosage: UNK
  5. AMLODIPINE BESILATE [Suspect]
     Active Substance: AMLODIPINE BESYLATE
     Dosage: UNK
  6. CANDESARTAN. [Interacting]
     Active Substance: CANDESARTAN
     Dosage: UNK

REACTIONS (4)
  - Dizziness [Unknown]
  - Syncope [Unknown]
  - Drug interaction [Unknown]
  - Hypotension [Unknown]
